FAERS Safety Report 14232300 (Version 2)
Quarter: 2017Q4

REPORT INFORMATION
  Report Type: Spontaneous
  Country: DE (occurrence: DE)
  Receive Date: 20171128
  Receipt Date: 20171222
  Transmission Date: 20180321
  Serious: Yes (Other)
  Sender: FDA-Public Use
  Company Number: DE-BAYER-2017-223267

PATIENT
  Age: 51 Year
  Sex: Female
  Weight: 94 kg

DRUGS (2)
  1. MIRENA [Suspect]
     Active Substance: LEVONORGESTREL
  2. MIRENA [Suspect]
     Active Substance: LEVONORGESTREL
     Indication: MENORRHAGIA
     Dosage: 20 MCG/24HR, CONT
     Route: 015
     Dates: start: 20161130, end: 20170518

REACTIONS (10)
  - Visual field defect [Recovered/Resolved]
  - Infection [None]
  - Toothache [None]
  - Menorrhagia [None]
  - Device expulsion [Recovered/Resolved]
  - Headache [Recovering/Resolving]
  - Pain [None]
  - Visual acuity reduced [None]
  - Eye pain [Recovered/Resolved]
  - Drug ineffective [None]

NARRATIVE: CASE EVENT DATE: 201704
